FAERS Safety Report 5224932-X (Version None)
Quarter: 2007Q1

REPORT INFORMATION
  Report Type: 
  Country: None (occurrence: None)
  Receive Date: 20070126
  Receipt Date: 20070115
  Transmission Date: 20070707
  Serious: Yes (Life-Threatening, Hospitalization, Other)
  Sender: FDA-Public Use
  Company Number: GXKR2007GB00803

PATIENT
  Age: 91 Year
  Sex: Male

DRUGS (2)
  1. ASPIRIN [Suspect]
     Dosage: 75 MG, QD; ORAL
     Route: 048
  2. CLOPIDOGREL [Suspect]
     Dosage: 75 MG, QD; ORAL
     Route: 048

REACTIONS (1)
  - ANAEMIA [None]
